FAERS Safety Report 8118848-9 (Version None)
Quarter: 2012Q1

REPORT INFORMATION
  Report Type: 
  Country: None (occurrence: None)
  Receive Date: 20120207
  Receipt Date: 20120124
  Transmission Date: 20120608
  Serious: Yes (Hospitalization)
  Sender: FDA-Public Use
  Company Number: DE-ELI_LILLY_AND_COMPANY-DE201201008239

PATIENT
  Sex: Female

DRUGS (4)
  1. EFFIENT [Suspect]
     Dosage: 10 MG, QD
  2. EFFIENT [Suspect]
     Indication: STENT PLACEMENT
     Dosage: 60 MG, LOADING DOSE
     Dates: start: 20110322, end: 20110322
  3. ASPIRIN [Concomitant]
     Dosage: UNK, LOADING DOSE
  4. ASPIRIN [Concomitant]
     Dosage: 100 MG, QD

REACTIONS (1)
  - INTRACARDIAC THROMBUS [None]
